FAERS Safety Report 4640932-2 (Version None)
Quarter: 2005Q2

REPORT INFORMATION
  Report Type: 
  Country: None (occurrence: None)
  Receive Date: 20050420
  Receipt Date: 20050331
  Transmission Date: 20051028
  Serious: Yes (Hospitalization, Disabling)
  Sender: FDA-Public Use
  Company Number: BE-MERCK-0503BEL00125

PATIENT
  Age: 73 Year
  Sex: Female

DRUGS (1)
  1. ZETIA [Suspect]
     Indication: HYPERLIPIDAEMIA
     Route: 048

REACTIONS (2)
  - CEREBRAL ISCHAEMIA [None]
  - ISCHAEMIC STROKE [None]
